FAERS Safety Report 10519112 (Version 1)
Quarter: 2014Q4

REPORT INFORMATION
  Report Type: Spontaneous
  Country: US (occurrence: None)
  Receive Date: 20141014
  Receipt Date: 20141014
  Transmission Date: 20150528
  Serious: No
  Sender: FDA-Public Use
  Company Number: None

PATIENT
  Age: 61 Year
  Sex: Male

DRUGS (1)
  1. EDEX [Suspect]
     Active Substance: ALPROSTADIL
     Dates: start: 20140926, end: 20141009

REACTIONS (2)
  - Chills [None]
  - Product quality issue [None]

NARRATIVE: CASE EVENT DATE: 20141008
